FAERS Safety Report 7367087-8 (Version None)
Quarter: 2011Q1

REPORT INFORMATION
  Report Type: 
  Country: None (occurrence: None)
  Receive Date: 20110322
  Receipt Date: 20090316
  Transmission Date: 20110831
  Serious: Yes (Death, Hospitalization, Other)
  Sender: FDA-Public Use
  Company Number: US-BAYER-200915502NA

PATIENT
  Sex: Male
  Weight: 107.94 kg

DRUGS (22)
  1. LIDOCAINE [Concomitant]
     Indication: PRODUCT USED FOR UNKNOWN INDICATION
     Dosage: 400 MG, UNK
     Route: 042
     Dates: start: 19990218, end: 19990218
  2. TRASYLOL [Suspect]
     Indication: CORONARY ARTERY BYPASS
     Dosage: 100ML
     Route: 042
     Dates: start: 19990218, end: 19990218
  3. SUFENTANIL CITRATE [Concomitant]
     Indication: PRODUCT USED FOR UNKNOWN INDICATION
     Dosage: 250 MG, UNK
     Route: 042
     Dates: start: 19990218, end: 19990218
  4. ESMOLOL [Concomitant]
     Indication: PRODUCT USED FOR UNKNOWN INDICATION
     Dosage: 50.0
     Route: 042
     Dates: start: 19990218, end: 19990218
  5. ATROPINE [Concomitant]
     Indication: PRODUCT USED FOR UNKNOWN INDICATION
     Dosage: 1 MG, UNK
     Route: 042
  6. CALCIUM CHLORIDE [Concomitant]
     Dosage: 2000 MG, UNK
     Route: 042
     Dates: start: 19990218, end: 19990218
  7. CONTRAST MEDIA [Concomitant]
     Indication: CARDIAC IMAGING PROCEDURE
  8. TRASYLOL [Suspect]
     Indication: AORTIC VALVE REPLACEMENT
     Dosage: 50CC/HR
     Route: 042
     Dates: start: 19990218, end: 19990218
  9. PROCAINAMIDE [Concomitant]
     Indication: PRODUCT USED FOR UNKNOWN INDICATION
     Dosage: 1 G, UNK
     Route: 042
     Dates: start: 19990218, end: 19990218
  10. PROPRANOLOL [Concomitant]
     Indication: PRODUCT USED FOR UNKNOWN INDICATION
     Dosage: 1 G, UNK
     Route: 042
     Dates: start: 19990218, end: 19990218
  11. KEFUROX [Concomitant]
     Indication: PRODUCT USED FOR UNKNOWN INDICATION
     Dosage: 1.5 G, UNK
     Route: 042
     Dates: start: 19990218, end: 19990218
  12. HESPAN IN EXCEL PLASTIC CONTAINER [Concomitant]
     Indication: PRODUCT USED FOR UNKNOWN INDICATION
     Dosage: 500
     Route: 042
     Dates: start: 19990218, end: 19990218
  13. PROTAMINE SULFATE [Concomitant]
     Indication: PRODUCT USED FOR UNKNOWN INDICATION
     Dosage: 550
     Dates: start: 19990218, end: 19990218
  14. TRASYLOL [Suspect]
     Indication: AORTIC SURGERY
     Dosage: 1 ML TEST DOSE
     Route: 042
     Dates: start: 19990218, end: 19990218
  15. HEPARIN [Concomitant]
     Indication: PRODUCT USED FOR UNKNOWN INDICATION
     Dosage: 100000 U, UNK
     Route: 042
     Dates: start: 19990218, end: 19990218
  16. PRIMACOR [Concomitant]
     Indication: PRODUCT USED FOR UNKNOWN INDICATION
     Dosage: 10 MG, UNK
     Route: 042
     Dates: start: 19990218, end: 19990218
  17. AMICAR [Concomitant]
     Indication: PRODUCT USED FOR UNKNOWN INDICATION
     Dosage: 16 G, UNK
     Route: 042
     Dates: start: 19990218, end: 19990218
  18. EPINEPHRINE [Concomitant]
     Indication: PRODUCT USED FOR UNKNOWN INDICATION
     Dosage: 3 MG, UNK
     Route: 042
     Dates: start: 19990218, end: 19990218
  19. BRETYLIUM [Concomitant]
     Indication: PRODUCT USED FOR UNKNOWN INDICATION
     Dosage: 500 MG, UNK
     Route: 042
     Dates: start: 19990218, end: 19990218
  20. MAGNESIUM SULFATE [Concomitant]
     Dosage: 2 G, UNK
     Route: 042
     Dates: start: 19990218, end: 19990218
  21. CONTRAST MEDIA [Concomitant]
     Indication: CATHETERISATION CARDIAC
     Dosage: UNK
     Dates: start: 19990216
  22. PAVULON [Concomitant]
     Indication: PRODUCT USED FOR UNKNOWN INDICATION
     Dosage: 28 MG, UNK
     Route: 042
     Dates: start: 19990218, end: 19990218

REACTIONS (11)
  - INJURY [None]
  - DEPRESSION [None]
  - DEATH [None]
  - RENAL FAILURE [None]
  - ANHEDONIA [None]
  - ADVERSE EVENT [None]
  - ANXIETY [None]
  - PAIN [None]
  - UNEVALUABLE EVENT [None]
  - EMOTIONAL DISTRESS [None]
  - FEAR [None]
